FAERS Safety Report 15658516 (Version 1)
Quarter: 2018Q4

REPORT INFORMATION
  Report Type: Report from Study
  Country: DE (occurrence: DE)
  Receive Date: 20181126
  Receipt Date: 20181126
  Transmission Date: 20190205
  Serious: Yes (Hospitalization, Disabling, Other)
  Sender: FDA-Public Use
  Company Number: DE-SA-2017SA132611

PATIENT
  Age: 23 Year
  Sex: Male

DRUGS (1)
  1. ALEMTUZUMAB [Suspect]
     Active Substance: ALEMTUZUMAB
     Indication: MULTIPLE SCLEROSIS
     Dosage: 12 MG,QD
     Route: 041
     Dates: start: 20170627, end: 20170629

REACTIONS (13)
  - Rash [Recovering/Resolving]
  - Pain [Recovered/Resolved]
  - Hypoaesthesia [Unknown]
  - Weight decreased [Unknown]
  - Headache [Recovered/Resolved]
  - Palpitations [Unknown]
  - Thyroid function test abnormal [Not Recovered/Not Resolved]
  - Insomnia [Not Recovered/Not Resolved]
  - Bronchitis [Unknown]
  - Fatigue [Unknown]
  - Paralysis [Unknown]
  - Seizure [Unknown]
  - Intervertebral disc protrusion [Unknown]

NARRATIVE: CASE EVENT DATE: 201706
